FAERS Safety Report 11755503 (Version 1)
Quarter: 2015Q4

REPORT INFORMATION
  Report Type: Spontaneous
  Country: FR (occurrence: FR)
  Receive Date: 20151119
  Receipt Date: 20151119
  Transmission Date: 20160304
  Serious: Yes (Death)
  Sender: FDA-Public Use
  Company Number: FR-MYLANLABS-2015M1040391

PATIENT

DRUGS (2)
  1. EPIRUBICIN [Suspect]
     Active Substance: EPIRUBICIN
     Indication: HEPATOCELLULAR CARCINOMA
     Dosage: 50 MG/25 ML
     Route: 065
  2. ETHIODIZED OIL [Concomitant]
     Active Substance: ETHIODIZED OIL
     Indication: PRODUCT USED FOR UNKNOWN INDICATION
     Dosage: 15ML PERFUSED IN 10ML
     Route: 065

REACTIONS (1)
  - Gastrointestinal haemorrhage [Fatal]
